FAERS Safety Report 19956141 (Version 1)
Quarter: 2021Q4

REPORT INFORMATION
  Report Type: Spontaneous
  Country: ES (occurrence: ES)
  Receive Date: 20211014
  Receipt Date: 20211014
  Transmission Date: 20220303
  Serious: Yes (Hospitalization, Other)
  Sender: FDA-Public Use
  Company Number: ES-TAKEDA-2021TUS062125

PATIENT
  Age: 54 Year
  Sex: Female

DRUGS (2)
  1. ADCETRIS [Suspect]
     Active Substance: BRENTUXIMAB VEDOTIN
     Indication: Anaplastic large-cell lymphoma
     Dosage: UNK
     Route: 065
  2. RASBURICASE [Concomitant]
     Active Substance: RASBURICASE
     Indication: Blood uric acid
     Dosage: UNK
     Route: 065

REACTIONS (6)
  - Blood lactate dehydrogenase abnormal [Unknown]
  - Lymphadenopathy [Unknown]
  - Chills [Unknown]
  - Pyrexia [Unknown]
  - Anaemia [Unknown]
  - Thrombocytopenia [Unknown]
